FAERS Safety Report 18479762 (Version 1)
Quarter: 2020Q4

REPORT INFORMATION
  Report Type: Spontaneous
  Country: CZ (occurrence: CZ)
  Receive Date: 20201109
  Receipt Date: 20201109
  Transmission Date: 20210114
  Serious: Yes (Other)
  Sender: FDA-Public Use
  Company Number: CZ-PFIZER INC-2020428796

PATIENT
  Age: 36 Year
  Sex: Male

DRUGS (16)
  1. COMBAIR [BECLOMETASONE DIPROPIONATE;FORMOTEROL FUMARATE] [Suspect]
     Active Substance: BECLOMETHASONE DIPROPIONATE\FORMOTEROL FUMARATE
     Indication: ASTHMA
     Dosage: 2 INHALATIONS TWICE DAILY
     Route: 055
  2. BERODUAL METERED-DOSE INHALER [Suspect]
     Active Substance: FENOTEROL HYDROBROMIDE\IPRATROPIUM BROMIDE
     Indication: ASTHMA
     Dosage: UNK, AS NEEDED (AS NEEDED ABOUT 3 TIMES A DAY 1-2 INHALATIONS, IN A NEBULIZER IN THE EVENING)
     Route: 055
  3. CASTISPIR [Concomitant]
     Active Substance: MONTELUKAST SODIUM
     Indication: ASTHMA
     Dosage: UNK
  4. AMITRIPTYLIN [Concomitant]
     Active Substance: AMITRIPTYLINE
     Dosage: UNK, 1X/DAY (AT NIGHT)
  5. VOLTAREN [DICLOFENAC] [Concomitant]
     Active Substance: DICLOFENAC SODIUM
     Indication: HEADACHE
     Dosage: UNK, AS NEEDED
  6. AULIN [Concomitant]
     Active Substance: NIMESULIDE
     Indication: HEADACHE
     Dosage: UNK, AS NEEDED
  7. MEDROL [Suspect]
     Active Substance: METHYLPREDNISOLONE
     Indication: ASTHMA
     Dosage: UNK, DAILY (LAST 3 WEEKS 32 MG, OTHERWISE THE DOSE BETWEEN 4 AND 32 MG DAILY)
  8. SPIRIVA RESPIMAT [Concomitant]
     Active Substance: TIOTROPIUM BROMIDE
     Indication: ASTHMA
     Dosage: 2 DF, 1X/DAY (2 INHALATIONS)
     Route: 055
  9. LYRICA [Concomitant]
     Active Substance: PREGABALIN
     Dosage: UNK
  10. APAURIN [Concomitant]
     Active Substance: DIAZEPAM
     Dosage: UNK, AS NEEDED (SOMETIMES)
  11. RELVAR ELLIPTA [FLUTICASONE FUROATE;VILANTEROL TRIFENATATE] [Suspect]
     Active Substance: FLUTICASONE FUROATE\VILANTEROL TRIFENATATE
     Indication: ASTHMA
     Dosage: UNK, 1X/DAY (ONE INHALATION IN THE MORNING)
     Route: 055
  12. AIRFLUSAN FORSPIRO [Suspect]
     Active Substance: FLUTICASONE PROPIONATE\SALMETEROL XINAFOATE
     Indication: ASTHMA
     Dosage: UNK, 2X/DAY (2 INHALATIONS IN THE MORNING, 2 INHALATIONS IN THE EVENING)
     Route: 055
  13. JOVESTO [Concomitant]
     Active Substance: DESLORATADINE
     Indication: ASTHMA
     Dosage: UNK
  14. EUPHYLLIN [THEOPHYLLINE] [Suspect]
     Active Substance: THEOPHYLLINE
     Indication: ASTHMA
     Dosage: 300 MG, 2X/DAY
  15. NEUROTOP [Concomitant]
     Active Substance: CARBAMAZEPINE
     Dosage: UNK
  16. NEUROL [ALPRAZOLAM] [Concomitant]
     Active Substance: ALPRAZOLAM
     Dosage: UNK, AS NEEDED (SOMETIMES)

REACTIONS (4)
  - Laryngitis [Unknown]
  - Gastrooesophageal reflux disease [Unknown]
  - Vocal cord dysfunction [Unknown]
  - Drug abuse [Unknown]
